FAERS Safety Report 7811185-9 (Version None)
Quarter: 2011Q4

REPORT INFORMATION
  Report Type: 
  Country: None (occurrence: None)
  Receive Date: 20111013
  Receipt Date: 20111007
  Transmission Date: 20120403
  Serious: Yes (Death)
  Sender: FDA-Public Use
  Company Number: AU-CELGENEUS-008-20785-11090187

PATIENT
  Sex: Male

DRUGS (3)
  1. THALIDOMIDE [Suspect]
     Indication: MYELOFIBROSIS
     Dosage: 50 MILLIGRAM
     Route: 048
     Dates: start: 20070213, end: 20110316
  2. PREDNISONE [Concomitant]
     Route: 065
  3. WARFARIN SODIUM [Concomitant]
     Route: 065
     Dates: start: 20070101

REACTIONS (1)
  - CARDIAC ARREST [None]
